FAERS Safety Report 16964959 (Version 2)
Quarter: 2019Q4

REPORT INFORMATION
  Report Type: Report from Study
  Country: US (occurrence: US)
  Receive Date: 20191028
  Receipt Date: 20191127
  Transmission Date: 20200122
  Serious: Yes (Other)
  Sender: FDA-Public Use
  Company Number: US-GLAXOSMITHKLINE-US2019TSO172676

PATIENT
  Age: 79 Year
  Sex: Female

DRUGS (1)
  1. NIRAPARIB [Suspect]
     Active Substance: NIRAPARIB
     Indication: OVARIAN CANCER
     Dosage: 200 MG, QD
     Route: 048
     Dates: start: 20190916, end: 20191007

REACTIONS (9)
  - Full blood count decreased [Unknown]
  - Swollen tongue [Recovered/Resolved]
  - Vomiting [Unknown]
  - Blood disorder [Unknown]
  - Acute kidney injury [Not Recovered/Not Resolved]
  - Hypophagia [Unknown]
  - Platelet count decreased [Unknown]
  - Drug intolerance [Unknown]
  - Blood creatinine increased [Unknown]

NARRATIVE: CASE EVENT DATE: 20190916
